FAERS Safety Report 21371952 (Version 1)
Quarter: 2022Q3

REPORT INFORMATION
  Report Type: Report from Study
  Country: JP (occurrence: JP)
  Receive Date: 20220923
  Receipt Date: 20220923
  Transmission Date: 20221026
  Serious: Yes (Hospitalization)
  Sender: FDA-Public Use
  Company Number: JP-ABBVIE-4127894

PATIENT
  Age: 67 Year
  Sex: Female
  Weight: 53 kg

DRUGS (14)
  1. VENETOCLAX [Suspect]
     Active Substance: VENETOCLAX
     Indication: Myelodysplastic syndrome
     Dosage: DAYS 1 - 14 OF EACH 28-DAY CYCLE
     Route: 048
     Dates: start: 20210708
  2. AZACITIDINE [Suspect]
     Active Substance: AZACITIDINE
     Indication: Myelodysplastic syndrome
     Dosage: 7 DAYS WITHIN THE FIRST 9 CALENDAR DAYS OF EACH 28-DAY CYCLE
     Route: 042
     Dates: start: 20210708
  3. PICOSULFATE NA ORAL SOLUTION 0.75 [Concomitant]
     Indication: Constipation
     Dosage: TIME INTERVAL: AS NECESSARY: PROPER QUANTITY
     Route: 048
     Dates: start: 20210713
  4. BUTLLER GEL SPRAY [Concomitant]
     Indication: Prophylaxis
     Dosage: TIME INTERVAL: AS NECESSARY: 1 PUSH
     Route: 048
     Dates: start: 20210727
  5. SENNOSIDES [Concomitant]
     Active Substance: SENNOSIDES
     Indication: Constipation
     Dosage: TIME INTERVAL: AS NECESSARY
     Route: 048
     Dates: start: 20210710
  6. MAGNESIUM OXIDE [Concomitant]
     Active Substance: MAGNESIUM OXIDE
     Indication: Constipation
     Dosage: TIME INTERVAL: AS NECESSARY
     Route: 048
     Dates: start: 20210712
  7. HYALURONATE SODIUM [Concomitant]
     Active Substance: HYALURONATE SODIUM
     Indication: Prophylaxis
     Dosage: TIME INTERVAL: 0.16666667 DAYS: 1 GTT
     Route: 047
     Dates: start: 202006
  8. CELECOXIB [Concomitant]
     Active Substance: CELECOXIB
     Indication: Arthralgia
     Dosage: TIME INTERVAL: AS NECESSARY
     Route: 048
     Dates: start: 20220223
  9. LOXOPROFEN NA TAPE 50MG [Concomitant]
     Indication: Osteoarthritis
     Dosage: TIME INTERVAL: AS NECESSARY
     Route: 062
     Dates: start: 20210831
  10. ADONA [Concomitant]
     Indication: Thrombocytopenia
     Route: 048
     Dates: start: 20220829
  11. FLUCONAZOLE [Concomitant]
     Active Substance: FLUCONAZOLE
     Indication: Infection prophylaxis
     Route: 048
     Dates: start: 20220905
  12. SODIUM GUALENATE [Concomitant]
     Active Substance: SODIUM GUALENATE
     Indication: Prophylaxis
     Route: 061
     Dates: start: 20210825
  13. INDOMETHACIN [Concomitant]
     Active Substance: INDOMETHACIN
     Indication: Arthralgia
     Dosage: TIME INTERVAL: AS NECESSARY
     Route: 062
     Dates: start: 20220415
  14. CALONAL [Concomitant]
     Active Substance: ACETAMINOPHEN
     Indication: Arthralgia
     Dosage: TIME INTERVAL: AS NECESSARY
     Route: 048
     Dates: start: 20220430

REACTIONS (1)
  - Febrile neutropenia [Not Recovered/Not Resolved]

NARRATIVE: CASE EVENT DATE: 20220916
